FAERS Safety Report 11348885 (Version 1)
Quarter: 2015Q3

REPORT INFORMATION
  Report Type: Report from Study
  Country: US (occurrence: US)
  Receive Date: 20150807
  Receipt Date: 20150807
  Transmission Date: 20151125
  Serious: Yes (Hospitalization, Other)
  Sender: FDA-Public Use
  Company Number: US-AMGEN-USASP2015078768

PATIENT
  Age: 78 Year
  Sex: Female

DRUGS (3)
  1. LEVOXYL [Concomitant]
     Active Substance: LEVOTHYROXINE SODIUM
     Dosage: UNK
  2. ENBREL [Suspect]
     Active Substance: ETANERCEPT
     Indication: RHEUMATOID ARTHRITIS
     Dosage: 50 MG, QWK
     Route: 058
  3. ASA [Concomitant]
     Active Substance: ASPIRIN

REACTIONS (8)
  - Adrenal insufficiency [Unknown]
  - Cellulitis [Unknown]
  - Contusion [Unknown]
  - Foot deformity [Unknown]
  - Localised infection [Unknown]
  - Skin haemorrhage [Unknown]
  - Laceration [Unknown]
  - Loss of consciousness [Unknown]

NARRATIVE: CASE EVENT DATE: 2015
